FAERS Safety Report 9296409 (Version 1)
Quarter: 2013Q2

REPORT INFORMATION
  Report Type: Spontaneous
  Country: BR (occurrence: BR)
  Receive Date: 20130517
  Receipt Date: 20130517
  Transmission Date: 20140414
  Serious: Yes (Other)
  Sender: FDA-Public Use
  Company Number: BR-AMGEN-BRASP2013034546

PATIENT
  Age: 46 Year
  Sex: Female
  Weight: 74 kg

DRUGS (2)
  1. ENBREL [Suspect]
     Indication: PRODUCT USED FOR UNKNOWN INDICATION
     Dosage: 25 MG, 2X/WEEK
     Dates: start: 2005
  2. ARTROLIVE [Concomitant]
     Indication: RHEUMATIC DISORDER
     Dosage: 400 MG, 2X/DAY
     Dates: start: 2012

REACTIONS (6)
  - Diabetes mellitus [Unknown]
  - Gastric ulcer [Recovered/Resolved]
  - Faeces discoloured [Unknown]
  - Back pain [Unknown]
  - Blood pressure increased [Unknown]
  - Diarrhoea [Unknown]
